FAERS Safety Report 7125732-6 (Version None)
Quarter: 2010Q4

REPORT INFORMATION
  Report Type: 
  Country: None (occurrence: None)
  Receive Date: 20101129
  Receipt Date: 20101122
  Transmission Date: 20110411
  Serious: Yes (Death)
  Sender: FDA-Public Use
  Company Number: B0677066A

PATIENT
  Age: 70 Year
  Sex: Female
  Weight: 43 kg

DRUGS (4)
  1. DEROXAT [Suspect]
     Indication: DEPRESSION
     Route: 048
     Dates: start: 20091101, end: 20100401
  2. PERINDOPRIL ERBUMINE [Concomitant]
     Dosage: 2.5MG PER DAY
     Route: 048
  3. FLECAINIDE ACETATE [Concomitant]
     Dosage: 50MG PER DAY
     Route: 048
  4. LEVOTHYROXINE SODIUM [Concomitant]
     Dosage: 75MCG PER DAY
     Route: 048

REACTIONS (2)
  - DEATH [None]
  - SUBDURAL HAEMATOMA [None]
